FAERS Safety Report 9809126 (Version 5)
Quarter: 2015Q3

REPORT INFORMATION
  Report Type: Spontaneous
  Country: US (occurrence: US)
  Receive Date: 20140110
  Receipt Date: 20150720
  Transmission Date: 20151125
  Serious: Yes (Hospitalization, Disabling, Other)
  Sender: FDA-Public Use
  Company Number: US-009507513-1401USA001037

PATIENT
  Sex: Female

DRUGS (3)
  1. ALENDRONATE SODIUM. [Suspect]
     Active Substance: ALENDRONATE SODIUM
     Indication: OSTEOPOROSIS
     Dosage: 70 MG, QW
     Route: 048
     Dates: start: 200507, end: 20091101
  2. FOSAMAX [Suspect]
     Active Substance: ALENDRONATE SODIUM
     Dosage: 70 MG, QW
     Route: 048
     Dates: start: 200405, end: 20080429
  3. FOSAMAX [Suspect]
     Active Substance: ALENDRONATE SODIUM
     Indication: OSTEOPOROSIS
     Dosage: 35 MG, BIW
     Route: 048
     Dates: start: 200211, end: 200405

REACTIONS (12)
  - Coronary artery disease [Unknown]
  - Rib fracture [Unknown]
  - Balance disorder [Unknown]
  - Femur fracture [Unknown]
  - Herpes zoster [Unknown]
  - Hyperlipidaemia [Unknown]
  - Intramedullary rod insertion [Unknown]
  - Carpal tunnel syndrome [Not Recovered/Not Resolved]
  - Inappropriate schedule of drug administration [Unknown]
  - Fracture nonunion [Unknown]
  - Foot fracture [Unknown]
  - Hypoglycaemia [Unknown]

NARRATIVE: CASE EVENT DATE: 2002
